FAERS Safety Report 16755404 (Version 1)
Quarter: 2019Q3

REPORT INFORMATION
  Report Type: Report from Study
  Country: CN (occurrence: CN)
  Receive Date: 20190829
  Receipt Date: 20190829
  Transmission Date: 20191005
  Serious: Yes (Other)
  Sender: FDA-Public Use
  Company Number: CN-ROCHE-2388672

PATIENT

DRUGS (2)
  1. OXALIPLATIN. [Suspect]
     Active Substance: OXALIPLATIN
     Indication: GASTROINTESTINAL CARCINOMA
     Route: 041
  2. CAPECITABINE. [Suspect]
     Active Substance: CAPECITABINE
     Indication: GASTROINTESTINAL CARCINOMA
     Dosage: 1000 MG/(M2*DAY) TWICE PER DAY
     Route: 048

REACTIONS (7)
  - Anaemia [Unknown]
  - Vomiting [Unknown]
  - Neurotoxicity [Unknown]
  - White blood cell count decreased [Unknown]
  - Hepatic function abnormal [Recovered/Resolved]
  - Platelet count decreased [Unknown]
  - Nausea [Unknown]
